FAERS Safety Report 4946279-9 (Version None)
Quarter: 2006Q1

REPORT INFORMATION
  Report Type: 
  Country: None (occurrence: None)
  Receive Date: 20060316
  Receipt Date: 20060316
  Transmission Date: 20060701
  Serious: Yes (Other)
  Sender: FDA-Public Use
  Company Number: None

PATIENT
  Sex: Male
  Weight: 90.7194 kg

DRUGS (1)
  1. AMBIEN [Suspect]
     Indication: RESTLESSNESS
     Dosage: 1 NIGHTLY PO
     Route: 048
     Dates: start: 20050901, end: 20060305

REACTIONS (2)
  - AMNESIA [None]
  - MEMORY IMPAIRMENT [None]
